FAERS Safety Report 7357592-2 (Version None)
Quarter: 2011Q1

REPORT INFORMATION
  Report Type: 
  Country: None (occurrence: None)
  Receive Date: 20110317
  Receipt Date: 20100922
  Transmission Date: 20110831
  Serious: Yes (Hospitalization)
  Sender: FDA-Public Use
  Company Number: US-BAYER-201020427NA

PATIENT
  Sex: Female
  Weight: 62.273 kg

DRUGS (14)
  1. OCELLA [Suspect]
     Indication: PREMENSTRUAL SYNDROME
     Route: 048
     Dates: start: 20081101, end: 20091001
  2. SUDAFED 12 HOUR [Concomitant]
  3. WELLBUTRIN XL [Concomitant]
     Indication: DEPRESSION
     Dosage: 300 MG (DAILY DOSE), QD,
     Dates: start: 20060403
  4. COLACE [Concomitant]
     Dates: start: 20080701
  5. YASMIN [Suspect]
     Indication: ORAL CONTRACEPTION
     Route: 048
     Dates: start: 20041001, end: 20081101
  6. YASMIN [Suspect]
     Indication: PREMENSTRUAL SYNDROME
  7. OCELLA [Suspect]
     Indication: ORAL CONTRACEPTION
  8. CITALOPRAM HYDROBROMIDE [Concomitant]
     Indication: ORAL CONTRACEPTION
     Dates: start: 20060126
  9. ANTIBIOTICS [Concomitant]
  10. THERAGRAN-M [Concomitant]
  11. OCELLA [Suspect]
  12. MINOCYCLINE HCL [Concomitant]
  13. YASMIN [Suspect]
  14. NSAID'S [Concomitant]

REACTIONS (7)
  - ABDOMINAL PAIN UPPER [None]
  - INCISION SITE PAIN [None]
  - HYPERPLASTIC CHOLECYSTOPATHY [None]
  - POST PROCEDURAL DISCHARGE [None]
  - NAUSEA [None]
  - CHOLELITHIASIS [None]
  - ABDOMINAL ABSCESS [None]
